FAERS Safety Report 8023066-9 (Version None)
Quarter: 2012Q1

REPORT INFORMATION
  Report Type: 
  Country: None (occurrence: None)
  Receive Date: 20120104
  Receipt Date: 20111222
  Transmission Date: 20120608
  Serious: Yes (Other)
  Sender: FDA-Public Use
  Company Number: US-PFIZER INC-2011314876

PATIENT
  Age: 37 Year
  Sex: Male

DRUGS (2)
  1. SILDENAFIL CITRATE [Suspect]
     Indication: ERECTILE DYSFUNCTION
     Dosage: 100 MG, UNK
     Route: 048
  2. SILDENAFIL CITRATE [Suspect]
     Dosage: 50 MG, 2X/DAY
     Route: 048

REACTIONS (6)
  - CHORIORETINOPATHY [None]
  - DYSPEPSIA [None]
  - CYANOPSIA [None]
  - NASAL CONGESTION [None]
  - PHOTOPHOBIA [None]
  - DIZZINESS [None]
